FAERS Safety Report 17075525 (Version 1)
Quarter: 2019Q4

REPORT INFORMATION
  Report Type: Spontaneous
  Country: US (occurrence: US)
  Receive Date: 20191125
  Receipt Date: 20191125
  Transmission Date: 20200122
  Serious: Yes (Other)
  Sender: FDA-Public Use
  Company Number: None

PATIENT
  Age: 80 Year
  Sex: Male
  Weight: 89.9 kg

DRUGS (7)
  1. ATORVASTATIN 40 MG [Concomitant]
     Active Substance: ATORVASTATIN
  2. PRADAXA [Suspect]
     Active Substance: DABIGATRAN ETEXILATE MESYLATE
     Indication: ATRIAL FIBRILLATION
     Route: 048
     Dates: start: 20191112, end: 20191121
  3. AMLODIPINE [Concomitant]
     Active Substance: AMLODIPINE BESYLATE
  4. LOSARTAN 50 MG [Concomitant]
     Active Substance: LOSARTAN
  5. ALBUTEROL HFA 90MCG/ACTUATION INHALER [Concomitant]
  6. DOCUSATE 100 MG [Concomitant]
  7. ASPIRIN 81 MG [Concomitant]
     Active Substance: ASPIRIN

REACTIONS (7)
  - Chest discomfort [None]
  - Headache [None]
  - Loss of consciousness [None]
  - Cold sweat [None]
  - Dizziness [None]
  - Balance disorder [None]
  - Dyspnoea [None]

NARRATIVE: CASE EVENT DATE: 20191121
